FAERS Safety Report 18298256 (Version 2)
Quarter: 2020Q3

REPORT INFORMATION
  Report Type: Spontaneous
  Country: US (occurrence: US)
  Receive Date: 20200922
  Receipt Date: 20200923
  Transmission Date: 20201103
  Serious: No
  Sender: FDA-Public Use
  Company Number: US-PFIZER INC-2020360597

PATIENT
  Age: 2 Year
  Sex: Male

DRUGS (1)
  1. IRINOTECAN HCL [Suspect]
     Active Substance: IRINOTECAN HYDROCHLORIDE
     Dosage: UNK
     Dates: start: 20200612

REACTIONS (8)
  - Vomiting [Unknown]
  - Swelling face [Unknown]
  - Anaplastic lymphoma kinase gene mutation [Unknown]
  - Facial pain [Unknown]
  - Neoplasm recurrence [Unknown]
  - Product use issue [Unknown]
  - Off label use [Unknown]
  - Diarrhoea [Unknown]

NARRATIVE: CASE EVENT DATE: 20200612
